FAERS Safety Report 4541802-0 (Version None)
Quarter: 2004Q4

REPORT INFORMATION
  Report Type: 
  Country: None (occurrence: None)
  Receive Date: 20041227
  Receipt Date: 20041213
  Transmission Date: 20050328
  Serious: Yes (Hospitalization)
  Sender: FDA-Public Use
  Company Number: 2004112657

PATIENT
  Age: 79 Year
  Sex: Female

DRUGS (4)
  1. XANAX [Suspect]
     Indication: ILL-DEFINED DISORDER
     Dosage: SOME DF (SOME TIME(S)), ORAL
     Route: 048
     Dates: end: 20040610
  2. PANTOPRAZOLE SODIUM [Suspect]
     Indication: ILL-DEFINED DISORDER
     Dosage: 40 MG (SOME TIME(S)), ORAL
     Route: 048
     Dates: end: 20040610
  3. PRINZIDE [Suspect]
     Indication: ESSENTIAL HYPERTENSION
     Dosage: SOME F (SOME TIME(S)), ORAL
     Route: 048
     Dates: end: 20040610
  4. PAROXETINE HCL [Suspect]
     Indication: DEPRESSION
     Dosage: 20 MG (SOME TIME(S)), ORAL
     Route: 048
     Dates: start: 20040529, end: 20040610

REACTIONS (2)
  - HYPOKALAEMIA [None]
  - HYPONATRAEMIA [None]
